FAERS Safety Report 11074850 (Version 1)
Quarter: 2015Q2

REPORT INFORMATION
  Report Type: Report from Study
  Country: US (occurrence: US)
  Receive Date: 20150429
  Receipt Date: 20150429
  Transmission Date: 20150821
  Serious: Yes (Other)
  Sender: FDA-Public Use
  Company Number: US-PFIZER INC-2015147206

PATIENT
  Age: 28 Year
  Sex: Female

DRUGS (2)
  1. LIDOCAINE HCL [Suspect]
     Active Substance: LIDOCAINE HYDROCHLORIDE
     Indication: BLEPHAROPLASTY
     Dosage: UNK
     Route: 050
  2. ADRENALINE [Suspect]
     Active Substance: EPINEPHRINE
     Indication: BLEPHAROPLASTY
     Dosage: UNK
     Route: 050

REACTIONS (3)
  - Muscular weakness [Recovered/Resolved]
  - Lagophthalmos [Recovered/Resolved]
  - Myopathy toxic [Recovered/Resolved]
